FAERS Safety Report 6298853-8 (Version None)
Quarter: 2009Q3

REPORT INFORMATION
  Report Type: 
  Country: None (occurrence: None)
  Receive Date: 20090730
  Receipt Date: 20080923
  Transmission Date: 20100115
  Serious: Yes (Hospitalization)
  Sender: FDA-Public Use
  Company Number: WAES 0809USA04158

PATIENT
  Age: 80 Year
  Sex: Female

DRUGS (6)
  1. TIMOPTIC-XE [Suspect]
     Indication: INTRAOCULAR PRESSURE INCREASED
     Dosage: 2 DRPS / DAILY/ OPHT
     Route: 047
  2. SYNTHROID [Concomitant]
  3. FOLIC ACID [Concomitant]
  4. IRON [Concomitant]
  5. TERAZOSIN HYDROCHLORIDE [Concomitant]
  6. VITAMINS [Concomitant]

REACTIONS (7)
  - ADVERSE EVENT [None]
  - HALLUCINATION [None]
  - NIGHTMARE [None]
  - OEDEMA PERIPHERAL [None]
  - PRODUCT QUALITY ISSUE [None]
  - RHEUMATOID ARTHRITIS [None]
  - SLEEP TALKING [None]
